FAERS Safety Report 4896026-4 (Version None)
Quarter: 2005Q4

REPORT INFORMATION
  Report Type: 
  Country: None (occurrence: None)
  Receive Date: 20051228
  Receipt Date: 20050321
  Transmission Date: 20060501
  Serious: Yes (Hospitalization)
  Sender: FDA-Public Use
  Company Number: US_980809029

PATIENT
  Age: 40 Year
  Sex: Male

DRUGS (5)
  1. HUMULIN N [Suspect]
     Indication: BLOOD INSULIN
     Dosage: 43 U/DAY
     Dates: start: 19890101
  2. HUMULIN R [Suspect]
     Indication: BLOOD INSULIN
     Dates: start: 19890101
  3. NPH ILETIN I (BEEF-PORK) [Suspect]
     Indication: DIABETES MELLITUS
  4. ILETIN I [Suspect]
     Indication: DIABETES MELLITUS INSULIN-DEPENDENT
     Dosage: 43 U/DAY
  5. ILETIN [Suspect]
     Indication: DIABETES MELLITUS
     Dates: start: 19990101

REACTIONS (9)
  - ASTHENIA [None]
  - BLOOD GLUCOSE INCREASED [None]
  - DRUG INEFFECTIVE [None]
  - FEELING ABNORMAL [None]
  - HUNGER [None]
  - HYPERTENSION [None]
  - HYPOGLYCAEMIA [None]
  - THINKING ABNORMAL [None]
  - WEIGHT DECREASED [None]
